FAERS Safety Report 22155319 (Version 2)
Quarter: 2023Q2

REPORT INFORMATION
  Report Type: Spontaneous
  Country: DE (occurrence: DE)
  Receive Date: 20230330
  Receipt Date: 20230426
  Transmission Date: 20230722
  Serious: Yes (Death, Hospitalization, Other)
  Sender: FDA-Public Use
  Company Number: DE-SANOFI-01548504

PATIENT
  Age: 64 Year
  Sex: Female

DRUGS (16)
  1. CEREZYME [Suspect]
     Active Substance: IMIGLUCERASE
     Indication: Gaucher^s disease
     Dosage: 4400 IU, QOW
     Route: 042
  2. EUTHYROX [Concomitant]
     Active Substance: LEVOTHYROXINE SODIUM
     Indication: Thyroid disorder
     Dosage: 88 UG, QD (SUNDAY: 100 UG)
     Route: 065
  3. LERCANIDIPINE HYDROCHLORIDE [Concomitant]
     Active Substance: LERCANIDIPINE HYDROCHLORIDE
     Indication: Blood pressure abnormal
     Dosage: 10 MG, QD
     Route: 065
  4. RAMIPRIL [Concomitant]
     Active Substance: RAMIPRIL
     Indication: Blood pressure abnormal
     Dosage: 5 MG, QD
     Route: 065
  5. CLOPIDOGREL BISULFATE [Concomitant]
     Active Substance: CLOPIDOGREL BISULFATE
     Indication: Post procedural myocardial infarction
     Dosage: 75 MG, QD (NSTEAD OF ASS DUE TO INTOLERANCE)
     Route: 065
  6. EZETIMIBE\ROSUVASTATIN [Concomitant]
     Active Substance: EZETIMIBE\ROSUVASTATIN
     Indication: Post procedural myocardial infarction
     Dosage: 20/10 MG, QD
     Route: 065
  7. EZETIMIBE\ROSUVASTATIN [Concomitant]
     Active Substance: EZETIMIBE\ROSUVASTATIN
     Indication: Post-traumatic epilepsy
     Dosage: 20/10 MG, QOD (STATUS POST SEIZURE)
     Route: 065
  8. NALOXONE HYDROCHLORIDE\TILIDINE HYDROCHLORIDE [Concomitant]
     Active Substance: NALOXONE HYDROCHLORIDE\TILIDINE HYDROCHLORIDE
     Indication: Pain
     Dosage: 150/12 MG, BID
     Route: 065
  9. UPLIZNA [INEBILIZUMAB] [Concomitant]
     Indication: Optic neuritis
     Dosage: INFUSION, Q6M
     Route: 042
  10. CHOLECALCIFEROL [Concomitant]
     Active Substance: CHOLECALCIFEROL
     Indication: Osteoporosis
     Dosage: 500 IU, PRN
     Route: 065
  11. CHOLECALCIFEROL [Concomitant]
     Active Substance: CHOLECALCIFEROL
     Indication: Multiple fractures
  12. METAMIZOLE SODIUM [Concomitant]
     Active Substance: METAMIZOLE SODIUM
     Indication: Pain
     Dosage: 500 MG, PRN (TID)
     Route: 065
  13. MAGNETRANS [MAGNESIUM OXIDE] [Concomitant]
     Indication: Muscle spasms
     Dosage: 375 MG, QD
     Route: 065
  14. METAMIZOLE [Concomitant]
     Active Substance: METAMIZOLE
     Indication: Pain
     Dosage: UNK
     Route: 065
  15. PREDNISOLONE [Concomitant]
     Active Substance: PREDNISOLONE
     Indication: Contrast media allergy
     Dosage: UNK
     Route: 065
     Dates: start: 202303
  16. PANTOPRAZOLE [Concomitant]
     Active Substance: PANTOPRAZOLE
     Indication: Gastrointestinal disorder
     Dosage: 40 MG, QD
     Route: 065

REACTIONS (62)
  - Sepsis [Fatal]
  - COVID-19 pneumonia [Fatal]
  - Acute respiratory failure [Fatal]
  - Acute respiratory distress syndrome [Fatal]
  - Systemic inflammatory response syndrome [Fatal]
  - Inflammatory marker increased [Fatal]
  - Infection [Fatal]
  - Septic encephalopathy [Fatal]
  - Thrombocytopenia [Fatal]
  - Platelet count decreased [Fatal]
  - Coagulopathy [Fatal]
  - Anaemia [Fatal]
  - Condition aggravated [Fatal]
  - Acute hepatic failure [Fatal]
  - Pancreatic carcinoma [Fatal]
  - Hypoglycaemia [Fatal]
  - Hypertonia [Fatal]
  - Hyperlipidaemia [Fatal]
  - Coeliac disease [Fatal]
  - Osteoporosis [Fatal]
  - Neuromyelitis optica spectrum disorder [Fatal]
  - Acute kidney injury [Fatal]
  - Metabolic acidosis [Fatal]
  - Subacute hepatic failure [Fatal]
  - Hypokalaemia [Fatal]
  - Motor dysfunction [Fatal]
  - Cognitive disorder [Fatal]
  - Biliary obstruction [Fatal]
  - Septic shock [Fatal]
  - Fatigue [Fatal]
  - Escherichia bacteraemia [Fatal]
  - General physical health deterioration [Fatal]
  - Abdominal pain upper [Fatal]
  - Hepatic enzyme increased [Fatal]
  - Lung infiltration [Fatal]
  - Liver disorder [Fatal]
  - Hypoxia [Fatal]
  - Oxygen saturation decreased [Fatal]
  - Arteriosclerosis coronary artery [Fatal]
  - Aortic arteriosclerosis [Fatal]
  - Hepatic lesion [Fatal]
  - Adrenomegaly [Fatal]
  - Bladder obstruction [Fatal]
  - Uterine enlargement [Fatal]
  - Renal cortical necrosis [Fatal]
  - Multiple organ dysfunction syndrome [Fatal]
  - Cardiovascular disorder [Fatal]
  - Condition aggravated [Fatal]
  - Respiratory fatigue [Fatal]
  - Hepatic failure [Fatal]
  - Skin necrosis [Fatal]
  - Condition aggravated [Fatal]
  - Nutritional condition abnormal [Fatal]
  - Lung consolidation [Fatal]
  - Pancreatic disorder [Fatal]
  - Renal cyst [Fatal]
  - Localised oedema [Fatal]
  - Gastric dilatation [Fatal]
  - Functional gastrointestinal disorder [Fatal]
  - Diverticulitis [Fatal]
  - Disorientation [Fatal]
  - Bladder catheterisation [Fatal]

NARRATIVE: CASE EVENT DATE: 20230301
